FAERS Safety Report 13149885 (Version 4)
Quarter: 2018Q1

REPORT INFORMATION
  Report Type: Report from Study
  Country: US (occurrence: US)
  Receive Date: 20170124
  Receipt Date: 20180108
  Transmission Date: 20180508
  Serious: No
  Sender: FDA-Public Use
  Company Number: US-AMGEN-USASL2016182186

PATIENT
  Age: 58 Year
  Sex: Female
  Weight: 67.57 kg

DRUGS (1)
  1. REPATHA [Suspect]
     Active Substance: EVOLOCUMAB
     Indication: HYPERLIPIDAEMIA
     Dosage: 140 MG/ML, Q2WK
     Route: 058
     Dates: start: 2016

REACTIONS (3)
  - Influenza like illness [Recovered/Resolved]
  - Rash [Unknown]
  - Acarodermatitis [Unknown]

NARRATIVE: CASE EVENT DATE: 20161212
